FAERS Safety Report 8162771-0 (Version None)
Quarter: 2012Q1

REPORT INFORMATION
  Report Type: 
  Country: None (occurrence: None)
  Receive Date: 20120103
  Receipt Date: 20111019
  Transmission Date: 20120608
  Serious: No
  Sender: FDA-Public Use
  Company Number: AE-2011-001478

PATIENT
  Age: 50 Year
  Sex: Male
  Weight: 64.8644 kg

DRUGS (6)
  1. INCIVEK [Suspect]
     Dosage: (3 IN 1 D)
     Dates: start: 20110831
  2. PEGINTERFERON (PEGINTERFERON ALFA-2A) [Concomitant]
  3. METHADONE HCL [Concomitant]
  4. XANAX [Concomitant]
  5. LITHIUM CARBONATE [Concomitant]
  6. RIBAVIRIN [Concomitant]

REACTIONS (2)
  - RASH [None]
  - ABDOMINAL DISCOMFORT [None]
